FAERS Safety Report 5026479-2 (Version None)
Quarter: 2006Q2

REPORT INFORMATION
  Report Type: 
  Country: None (occurrence: None)
  Receive Date: 20060613
  Receipt Date: 20060613
  Transmission Date: 20061013
  Serious: Yes (Other)
  Sender: FDA-Public Use
  Company Number: None

PATIENT
  Age: 41 Year
  Sex: Male
  Weight: 74 kg

DRUGS (1)
  1. CLOZAPINE [Suspect]
     Indication: SCHIZOAFFECTIVE DISORDER
     Dosage: 550 MG PO DAILY
     Route: 048

REACTIONS (6)
  - ABNORMAL BEHAVIOUR [None]
  - CONFUSIONAL STATE [None]
  - DISORIENTATION [None]
  - GAIT DISTURBANCE [None]
  - INCOHERENT [None]
  - MENTAL STATUS CHANGES [None]
